FAERS Safety Report 6447626-1 (Version None)
Quarter: 2009Q4

REPORT INFORMATION
  Report Type: 
  Country: None (occurrence: None)
  Receive Date: 20091119
  Receipt Date: 20081105
  Transmission Date: 20100525
  Serious: Yes (Other)
  Sender: FDA-Public Use
  Company Number: US-AMGEN-QUU315866

PATIENT
  Sex: Female
  Weight: 71.3 kg

DRUGS (6)
  1. ENBREL [Suspect]
     Indication: RHEUMATOID ARTHRITIS
     Route: 058
     Dates: start: 20040701
  2. ALEVE [Concomitant]
  3. DARVOCET-N 100 [Concomitant]
  4. DIOVAN HCT [Concomitant]
  5. LORTAB [Concomitant]
  6. CARTIA XT [Concomitant]

REACTIONS (3)
  - FURUNCLE [None]
  - HEPATITIS B [None]
  - NASAL ABSCESS [None]
